FAERS Safety Report 17455656 (Version 1)
Quarter: 2020Q1

REPORT INFORMATION
  Report Type: Spontaneous
  Country: US (occurrence: US)
  Receive Date: 20200224
  Receipt Date: 20200224
  Transmission Date: 20200409
  Serious: No
  Sender: FDA-Public Use
  Company Number: None

PATIENT
  Age: 46 Year
  Sex: Female

DRUGS (1)
  1. ENOXAPARIN INJ 80MG/0.8ML [Suspect]
     Active Substance: ENOXAPARIN
     Route: 058
     Dates: start: 202002

REACTIONS (2)
  - Headache [None]
  - Burning sensation [None]

NARRATIVE: CASE EVENT DATE: 20200224
